FAERS Safety Report 4955871-7 (Version None)
Quarter: 2006Q1

REPORT INFORMATION
  Report Type: 
  Country: None (occurrence: None)
  Receive Date: 20060327
  Receipt Date: 20060327
  Transmission Date: 20060701
  Serious: Yes (Other)
  Sender: FDA-Public Use
  Company Number: None

PATIENT
  Sex: Male
  Weight: 179.3 kg

DRUGS (8)
  1. OMEPRAZOLE [Suspect]
     Indication: GASTROINTESTINAL HAEMORRHAGE
     Dosage: 1 CAP DAILY
     Dates: start: 20051208, end: 20051221
  2. OMEPRAZOLE [Suspect]
     Indication: GASTROOESOPHAGEAL REFLUX DISEASE
     Dosage: 1 CAP DAILY
     Dates: start: 20051208, end: 20051221
  3. CLOPIDOGREL [Concomitant]
  4. VICODIN [Concomitant]
  5. LOSARTAN POTASSIUM [Concomitant]
  6. NIACIN (NIASPAN-KOS) [Concomitant]
  7. PREDNISONE [Concomitant]
  8. SIMVASTATIN [Concomitant]

REACTIONS (2)
  - STOMATITIS [None]
  - TONGUE ULCERATION [None]
